FAERS Safety Report 5414185-1 (Version None)
Quarter: 2007Q3

REPORT INFORMATION
  Report Type: 
  Country: None (occurrence: None)
  Receive Date: 20070814
  Receipt Date: 20070802
  Transmission Date: 20080115
  Serious: Yes (Other)
  Sender: FDA-Public Use
  Company Number: FR-PFIZER INC-2007056489

PATIENT
  Sex: Male
  Weight: 70 kg

DRUGS (7)
  1. LYRICA [Suspect]
     Indication: NEURALGIA
     Route: 048
  2. LYRICA [Suspect]
     Indication: CENTRAL PAIN SYNDROME
  3. TAHOR [Concomitant]
     Indication: CEREBRAL ISCHAEMIA
     Route: 048
  4. KARDEGIC [Concomitant]
     Indication: CEREBROVASCULAR ACCIDENT
     Dosage: DAILY DOSE:160MG
     Route: 048
  5. NORSET [Concomitant]
  6. NORDAZ [Concomitant]
     Indication: DEPRESSION
     Dosage: DAILY DOSE:15MG
     Route: 048
  7. COVERSYL [Concomitant]
     Indication: CEREBRAL ISCHAEMIA
     Dosage: DAILY DOSE:2MG
     Route: 048
     Dates: start: 20061101

REACTIONS (2)
  - CHOREA [None]
  - SOMNOLENCE [None]
